FAERS Safety Report 8534367-X (Version None)
Quarter: 2012Q3

REPORT INFORMATION
  Report Type: 
  Country: None (occurrence: None)
  Receive Date: 20120724
  Receipt Date: 20120718
  Transmission Date: 20120928
  Serious: Yes (Other)
  Sender: FDA-Public Use
  Company Number: PHHY2011CA91771

PATIENT
  Sex: Male

DRUGS (2)
  1. GILENYA [Suspect]
     Indication: RELAPSING-REMITTING MULTIPLE SCLEROSIS
     Dosage: 0.5 MG, DAILY
     Route: 048
     Dates: start: 20110607
  2. GILENYA [Suspect]
     Dosage: 0.5 MG, TWO TIMES PER WEEK
     Route: 048

REACTIONS (10)
  - INAPPROPRIATE SCHEDULE OF DRUG ADMINISTRATION [None]
  - OROPHARYNGEAL PAIN [None]
  - WHITE BLOOD CELL COUNT DECREASED [None]
  - NASOPHARYNGITIS [None]
  - CLAVICLE FRACTURE [None]
  - MUSCULOSKELETAL PAIN [None]
  - SECRETION DISCHARGE [None]
  - INFLUENZA LIKE ILLNESS [None]
  - VISION BLURRED [None]
  - RHINORRHOEA [None]
